FAERS Safety Report 19313070 (Version 2)
Quarter: 2021Q3

REPORT INFORMATION
  Report Type: Spontaneous
  Country: AU (occurrence: AU)
  Receive Date: 20210527
  Receipt Date: 20210705
  Transmission Date: 20211014
  Serious: Yes (Other)
  Sender: FDA-Public Use
  Company Number: AU-EMD SERONO-9239228

PATIENT
  Age: 32 Year
  Sex: Female

DRUGS (3)
  1. OVIDREL [Suspect]
     Active Substance: CHORIOGONADOTROPIN ALFA
     Indication: PRODUCT USED FOR UNKNOWN INDICATION
     Route: 058
  2. FOLLITROPIN ALFA [Suspect]
     Active Substance: FOLLITROPIN ALFA
     Indication: PRODUCT USED FOR UNKNOWN INDICATION
  3. GANIRELIX [Suspect]
     Active Substance: GANIRELIX
     Indication: PRODUCT USED FOR UNKNOWN INDICATION

REACTIONS (5)
  - Abdominal distension [Unknown]
  - Hypophagia [Unknown]
  - Hyperkalaemia [Unknown]
  - Abdominal pain [Recovered/Resolved]
  - Vomiting [Unknown]

NARRATIVE: CASE EVENT DATE: 20201120
